FAERS Safety Report 6960226-X (Version None)
Quarter: 2010Q3

REPORT INFORMATION
  Report Type: 
  Country: None (occurrence: None)
  Receive Date: 20100901
  Receipt Date: 20100827
  Transmission Date: 20110219
  Serious: Yes (Death)
  Sender: FDA-Public Use
  Company Number: JP-BAYER-200913243BYL

PATIENT
  Age: 81 Year
  Sex: Male

DRUGS (12)
  1. NEXAVAR [Suspect]
     Indication: HEPATIC NEOPLASM MALIGNANT
     Dosage: UNIT DOSE: 200 MG
     Route: 048
     Dates: start: 20090902, end: 20091129
  2. OMEPRAL [Concomitant]
     Route: 048
     Dates: start: 20080806
  3. PURSENNID [Concomitant]
     Route: 048
     Dates: start: 20080806
  4. URSO 250 [Concomitant]
     Route: 048
     Dates: start: 20080806
  5. GLYCYRON [Concomitant]
     Route: 048
     Dates: start: 20080806
  6. CEREKINON [Concomitant]
     Route: 048
     Dates: start: 20080806
  7. GLAKAY [Concomitant]
     Route: 048
     Dates: start: 20080806
  8. NU-LOTAN [Concomitant]
     Route: 048
     Dates: start: 20080806
  9. LASIX [Concomitant]
     Route: 048
     Dates: start: 20080806
  10. ALDACTONE [Concomitant]
     Route: 048
     Dates: start: 20080806
  11. DAI-KENCHU-TO [Concomitant]
     Route: 048
     Dates: start: 20080806
  12. AMINOLEBAN EN [Concomitant]
     Route: 048
     Dates: start: 20080806

REACTIONS (3)
  - DIARRHOEA [None]
  - HYPERTENSION [None]
  - SEPSIS [None]
